FAERS Safety Report 19370793 (Version 1)
Quarter: 2021Q2

REPORT INFORMATION
  Report Type: Spontaneous
  Country: JP (occurrence: JP)
  Receive Date: 20210603
  Receipt Date: 20210603
  Transmission Date: 20210717
  Serious: Yes (Life-Threatening, Hospitalization)
  Sender: FDA-Public Use
  Company Number: JP-PFIZER INC-2021579323

PATIENT
  Age: 70 Year
  Sex: Male
  Weight: 51.9 kg

DRUGS (7)
  1. BEVACIZUMAB PFIZER [Suspect]
     Active Substance: BEVACIZUMAB
     Indication: METASTASES TO LIVER
  2. OXALIPLATIN. [Concomitant]
     Active Substance: OXALIPLATIN
     Indication: RECTAL NEOPLASM
     Dosage: UNK
     Dates: start: 20200214
  3. CAPECITABINE. [Concomitant]
     Active Substance: CAPECITABINE
     Indication: RECTAL NEOPLASM
     Dosage: UNK
     Dates: start: 20200214
  4. CAPECITABINE. [Concomitant]
     Active Substance: CAPECITABINE
     Indication: METASTASES TO LIVER
  5. DAIKENCHUTO [Concomitant]
     Active Substance: HERBALS
     Dosage: UNK
  6. BEVACIZUMAB PFIZER [Suspect]
     Active Substance: BEVACIZUMAB
     Indication: RECTAL NEOPLASM
     Dosage: 400 MG, CYCLIC
     Route: 042
     Dates: start: 20200214, end: 20210408
  7. OXALIPLATIN. [Concomitant]
     Active Substance: OXALIPLATIN
     Indication: METASTASES TO LIVER

REACTIONS (1)
  - Pneumothorax [Recovering/Resolving]

NARRATIVE: CASE EVENT DATE: 20210421
